FAERS Safety Report 8241439 (Version 7)
Quarter: 2012Q4

REPORT INFORMATION
  Report Type: 
  Country: FR (occurrence: FR)
  Receive Date: 20111111
  Receipt Date: 20121214
  Transmission Date: 20130627
  Serious: Yes (Other)
  Sender: FDA-Public Use
  Company Number: FR-PFIZER INC-2011270117

PATIENT
  Age: 42 Year
  Sex: Male
  Weight: 82 kg

DRUGS (4)
  1. CRIZOTINIB [Suspect]
     Indication: LUNG ADENOCARCINOMA METASTATIC
     Dosage: 250 mg, 2x/day
     Route: 048
     Dates: start: 20110607, end: 20111103
  2. OGASTRO [Concomitant]
     Indication: EPIGASTRIC PAIN
     Dosage: 30 mg, 1x/day
     Route: 048
  3. SOLUPRED [Concomitant]
     Indication: CEREBRAL OEDEMA
     Dosage: Daily dose of 80 (no unit), corresponding 3 DF in the morning, 1 DF at midday
  4. SOLUPRED [Concomitant]
     Dosage: 30 mg, 2x/day
     Route: 048

REACTIONS (1)
  - Hepatocellular injury [Recovering/Resolving]
